FAERS Safety Report 16825522 (Version 4)
Quarter: 2021Q4

REPORT INFORMATION
  Report Type: Report from Study
  Country: JP (occurrence: JP)
  Receive Date: 20190919
  Receipt Date: 20211004
  Transmission Date: 20220303
  Serious: Yes (Death, Hospitalization, Other)
  Sender: FDA-Public Use
  Company Number: JP-KYOWAKIRIN-2019AKK002245

PATIENT
  Age: 72 Year
  Sex: Male

DRUGS (29)
  1. DARBEPOETIN ALFA [Suspect]
     Active Substance: DARBEPOETIN ALFA
     Indication: Myelodysplastic syndrome
     Dosage: 240 MICROGRAM, QWK
     Route: 058
     Dates: start: 20170406, end: 20171003
  2. DARBEPOETIN ALFA [Suspect]
     Active Substance: DARBEPOETIN ALFA
     Dosage: 240 MICROGRAM, QWK
     Route: 058
     Dates: start: 20180123, end: 20180717
  3. AZOSEMIDE [Suspect]
     Active Substance: AZOSEMIDE
     Indication: Product used for unknown indication
     Dosage: 15 MILLIGRAM
     Route: 048
     Dates: start: 20181010, end: 20181120
  4. METHENOLONE [Suspect]
     Active Substance: METHENOLONE
     Indication: Myelodysplastic syndrome
     Dosage: 10 MILLIGRAM
     Route: 048
     Dates: start: 20171122, end: 20180213
  5. CEFAZOLIN SODIUM [Concomitant]
     Active Substance: CEFAZOLIN SODIUM
     Indication: Fasciitis
     Dosage: 2 G
     Route: 065
     Dates: start: 20170518, end: 20170518
  6. CALONAL [Concomitant]
     Active Substance: ACETAMINOPHEN
     Indication: Fasciitis
     Dosage: 400 MG
     Route: 048
     Dates: start: 20170518, end: 20170518
  7. CEFDINIR [Concomitant]
     Active Substance: CEFDINIR
     Indication: Fasciitis
     Dosage: 300 MG
     Route: 048
     Dates: start: 20170519, end: 20170521
  8. CLOBETASOL [Concomitant]
     Active Substance: CLOBETASOL
     Dosage: 5 G
     Route: 061
     Dates: start: 20170712, end: 20170712
  9. CHONDROITIN SULFATE (BOVINE) [Concomitant]
     Active Substance: CHONDROITIN SULFATE (BOVINE)
     Dosage: 25 GRAM
     Route: 061
     Dates: start: 20170110
  10. CHONDROITIN SULFATE (BOVINE) [Concomitant]
     Active Substance: CHONDROITIN SULFATE (BOVINE)
     Dosage: 25 G
     Route: 061
     Dates: start: 20180110
  11. SPIRONOLACTONE [Concomitant]
     Active Substance: SPIRONOLACTONE
     Dosage: 50 MG
     Route: 048
     Dates: start: 20170117
  12. SPIRONOLACTONE [Concomitant]
     Active Substance: SPIRONOLACTONE
     Dosage: 50 MG
     Route: 048
     Dates: start: 20180117, end: 20180410
  13. FUROSEMIDE [Concomitant]
     Active Substance: FUROSEMIDE
     Dosage: 20 MG
     Route: 048
     Dates: start: 20171206, end: 20180116
  14. LANSOPRAZOLE [Concomitant]
     Active Substance: LANSOPRAZOLE
     Indication: Myelodysplastic syndrome
     Dosage: 200 MG
     Route: 048
     Dates: start: 20180810
  15. AUGMENTIN [Concomitant]
     Active Substance: AMOXICILLIN\CLAVULANATE POTASSIUM
     Dosage: 750 MILLIGRAM
     Route: 048
     Dates: start: 20180904, end: 20180907
  16. GLYCOPYRRONIUM\INDACATEROL [Concomitant]
     Active Substance: GLYCOPYRRONIUM\INDACATEROL
     Dosage: 1 DF
     Dates: start: 20180926
  17. LEVOFLOXACIN [Concomitant]
     Active Substance: LEVOFLOXACIN
     Dosage: 500 MILLIGRAM
     Route: 048
     Dates: start: 20181009, end: 20181013
  18. NAFTOPIDIL [Concomitant]
     Active Substance: NAFTOPIDIL
     Indication: Urinary retention
     Dosage: 50 MG
     Route: 048
     Dates: start: 20181009
  19. LEVOTHYROXINE SODIUM [Concomitant]
     Active Substance: LEVOTHYROXINE SODIUM
     Dosage: 25 UG
     Route: 048
     Dates: start: 20181011
  20. AZITHROMYCIN DIHYDRATE [Concomitant]
     Active Substance: AZITHROMYCIN DIHYDRATE
     Dosage: 500 MG
     Route: 048
     Dates: start: 20181015, end: 20181017
  21. LOXOPROFEN SODIUM [Concomitant]
     Active Substance: LOXOPROFEN SODIUM
     Dosage: 180 MG
     Route: 048
     Dates: start: 20181016, end: 20181022
  22. AMBROXOL HYDROCHLORIDE [Concomitant]
     Active Substance: AMBROXOL HYDROCHLORIDE
     Dosage: 45 MG
     Route: 048
     Dates: start: 20181016, end: 20181108
  23. LANSOPRAZOLE [Concomitant]
     Active Substance: LANSOPRAZOLE
     Dosage: 15 MG
     Route: 048
     Dates: start: 20181016, end: 20181120
  24. EDOXABAN TOSYLATE [Concomitant]
     Active Substance: EDOXABAN TOSYLATE
     Dosage: 30 MG
     Route: 048
     Dates: start: 20181109
  25. BETHANECHOL CHLORIDE [Concomitant]
     Active Substance: BETHANECHOL CHLORIDE
     Indication: Urinary retention
     Dosage: 45 MG
     Route: 048
     Dates: start: 20181105, end: 20181120
  26. HEPARIN [Concomitant]
     Active Substance: HEPARIN SODIUM
     Dosage: 23000 IU
     Route: 065
     Dates: start: 20181010, end: 20181108
  27. PAZUFLOXACIN MESILATE [Concomitant]
     Active Substance: PAZUFLOXACIN MESILATE
     Dosage: UNK
     Route: 065
     Dates: start: 20181106, end: 20181110
  28. HERBALS [Concomitant]
     Active Substance: HERBALS
     Dosage: 7.5 GRAM
     Route: 048
     Dates: start: 20181112, end: 20181118
  29. CEFCAPENE PIVOXIL HYDROCHLORIDE [Concomitant]
     Active Substance: CEFCAPENE PIVOXIL HYDROCHLORIDE
     Dosage: 300 MILLIGRAM
     Route: 048
     Dates: start: 20181122, end: 20181128

REACTIONS (19)
  - Lung neoplasm malignant [Recovered/Resolved with Sequelae]
  - Hypothyroidism [Not Recovered/Not Resolved]
  - Deep vein thrombosis [Not Recovered/Not Resolved]
  - Pneumonia [Recovered/Resolved]
  - Pneumonia aspiration [Fatal]
  - Hepatic failure [Fatal]
  - Septic shock [Recovering/Resolving]
  - Pneumonia [Recovering/Resolving]
  - Urinary tract infection [Recovering/Resolving]
  - Vomiting [Recovered/Resolved]
  - Muscle spasms [Recovered/Resolved]
  - Xeroderma [Not Recovered/Not Resolved]
  - Oedema [Not Recovered/Not Resolved]
  - Erythema [Recovered/Resolved]
  - Pharyngitis [Recovered/Resolved]
  - Hyponatraemia [Recovered/Resolved]
  - Constipation [Not Recovered/Not Resolved]
  - Urinary tract infection [Recovered/Resolved]
  - Urinary tract infection [Recovered/Resolved]

NARRATIVE: CASE EVENT DATE: 20170712
